FAERS Safety Report 6013438-6 (Version None)
Quarter: 2008Q4

REPORT INFORMATION
  Report Type: 
  Country: None (occurrence: None)
  Receive Date: 20081217
  Receipt Date: 20081203
  Transmission Date: 20090506
  Serious: Yes (Hospitalization)
  Sender: FDA-Public Use
  Company Number: DL2008525

PATIENT
  Age: 26 Year
  Sex: Female

DRUGS (2)
  1. MIFEPRISTONE TABLETS, 200 MG (DANCO LABS) [Suspect]
     Indication: ABORTION INDUCED
     Dosage: 200 MG, ORAL
     Route: 048
     Dates: start: 20081001
  2. MISOPROSTOL [Suspect]
     Dosage: 800 MCG, BUCCAL
     Route: 002
     Dates: start: 20081011

REACTIONS (7)
  - ADHESION [None]
  - ASCITES [None]
  - BODY TEMPERATURE INCREASED [None]
  - CHILLS [None]
  - ENDOMETRITIS [None]
  - FEELING ABNORMAL [None]
  - SMALL INTESTINAL OBSTRUCTION [None]
